FAERS Safety Report 22135783 (Version 2)
Quarter: 2023Q1

REPORT INFORMATION
  Report Type: Report from Study
  Country: US (occurrence: US)
  Receive Date: 20230324
  Receipt Date: 20230330
  Transmission Date: 20230417
  Serious: No
  Sender: FDA-Public Use
  Company Number: US-GILEAD-2023-0621430

PATIENT
  Age: 46 Year
  Sex: Female

DRUGS (4)
  1. AMBRISENTAN [Suspect]
     Active Substance: AMBRISENTAN
     Indication: Pulmonary arterial hypertension
     Dosage: UNK
     Route: 065
     Dates: end: 20230314
  2. TYVASO [Suspect]
     Active Substance: TREPROSTINIL
     Indication: Pulmonary arterial hypertension
     Dosage: 64 UG, QID
     Route: 055
  3. TYVASO [Suspect]
     Active Substance: TREPROSTINIL
     Dosage: UNK
     Route: 055
  4. SILDENAFIL CITRATE [Concomitant]
     Active Substance: SILDENAFIL CITRATE

REACTIONS (7)
  - Malaise [Unknown]
  - Blood pressure decreased [Not Recovered/Not Resolved]
  - Somnolence [Unknown]
  - Feeling abnormal [Unknown]
  - Fatigue [Unknown]
  - Headache [Unknown]
  - Depression [Unknown]

NARRATIVE: CASE EVENT DATE: 20220101
